FAERS Safety Report 4736371-6 (Version None)
Quarter: 2005Q3

REPORT INFORMATION
  Report Type: 
  Country: None (occurrence: None)
  Receive Date: 20050802
  Receipt Date: 20050719
  Transmission Date: 20060218
  Serious: Yes (Other)
  Sender: FDA-Public Use
  Company Number: DE-2005-002608

PATIENT
  Age: 33 Year
  Sex: Female

DRUGS (1)
  1. YASMIN [Suspect]
     Dosage: 3/0.03 MG, ORAL
     Route: 048
     Dates: start: 20040101

REACTIONS (4)
  - BREAST DISCOMFORT [None]
  - METRORRHAGIA [None]
  - PAIN IN EXTREMITY [None]
  - WALKING AID USER [None]
